FAERS Safety Report 4445276-X (Version None)
Quarter: 2004Q3

REPORT INFORMATION
  Report Type: 
  Country: None (occurrence: None)
  Receive Date: 20040907
  Receipt Date: 20040823
  Transmission Date: 20050211
  Serious: Yes (Death)
  Sender: FDA-Public Use
  Company Number: 04P-144-0269734-00

PATIENT
  Age: 39 Year
  Sex: Male

DRUGS (3)
  1. KALETRA SOLFT GELATIN CAPSULES (LOPINAVIR/RITONAVIR) [Suspect]
     Indication: HIV INFECTION
     Dosage: 3 CAPSULE, 2 IN 1 D, ORAL
     Route: 048
     Dates: start: 20020604, end: 20040619
  2. NEVIRAPINE [Concomitant]
  3. TENOFOVIR [Concomitant]

REACTIONS (3)
  - CONDITION AGGRAVATED [None]
  - DEMENTIA [None]
  - PROGRESSIVE MULTIFOCAL LEUKOENCEPHALOPATHY [None]
